FAERS Safety Report 19926698 (Version 3)
Quarter: 2021Q4

REPORT INFORMATION
  Report Type: Report from Study
  Country: US (occurrence: US)
  Receive Date: 20211006
  Receipt Date: 20211118
  Transmission Date: 20220303
  Serious: Yes (Death, Hospitalization)
  Sender: FDA-Public Use
  Company Number: US-TAIHO ONCOLOGY INC-EU-2021-03111

PATIENT
  Age: 75 Year
  Sex: Male

DRUGS (10)
  1. LONSURF [Suspect]
     Active Substance: TIPIRACIL HYDROCHLORIDE\TRIFLURIDINE
     Indication: Product used for unknown indication
     Dosage: CYCLE 1, CURRENT CYCLE UNKNOWN
     Route: 048
     Dates: start: 20190916, end: 20210821
  2. ATENOLOL [Concomitant]
     Active Substance: ATENOLOL
  3. VITAMIN D3 [Concomitant]
     Active Substance: CHOLECALCIFEROL
  4. ELIQUIS [Concomitant]
     Active Substance: APIXABAN
  5. LASIX [Concomitant]
     Active Substance: FUROSEMIDE
  6. EMLA [Concomitant]
     Active Substance: LIDOCAINE\PRILOCAINE
  7. MORPHINE [Concomitant]
     Active Substance: MORPHINE
  8. ZOFRAN [Concomitant]
     Active Substance: ONDANSETRON HYDROCHLORIDE
  9. COMPAZINE [Concomitant]
     Active Substance: PROCHLORPERAZINE MALEATE
  10. TENSILON [Concomitant]
     Active Substance: EDROPHONIUM CHLORIDE

REACTIONS (3)
  - Disease progression [Fatal]
  - Dehydration [Unknown]
  - Asthenia [Unknown]
